FAERS Safety Report 4963011-3 (Version None)
Quarter: 2006Q2

REPORT INFORMATION
  Report Type: 
  Country: None (occurrence: None)
  Receive Date: 20060405
  Receipt Date: 20060328
  Transmission Date: 20061013
  Serious: Yes (Hospitalization, Other)
  Sender: FDA-Public Use
  Company Number: US-JNJFOC-20060300206

PATIENT
  Sex: Male
  Weight: 102.06 kg

DRUGS (3)
  1. LEVAQUIN [Suspect]
     Route: 048
     Dates: start: 20060115, end: 20060125
  2. LEVAQUIN [Suspect]
     Route: 048
     Dates: start: 20060115, end: 20060125
  3. BLOOD PRESSURE MEDICATION [Concomitant]

REACTIONS (15)
  - ANOREXIA [None]
  - HEPATOMEGALY [None]
  - INFECTIOUS MONONUCLEOSIS [None]
  - INSOMNIA [None]
  - JAUNDICE [None]
  - MALAISE [None]
  - MUSCLE SPASMS [None]
  - NIGHT SWEATS [None]
  - OEDEMA PERIPHERAL [None]
  - PRURITUS [None]
  - PYREXIA [None]
  - RASH [None]
  - SPLENOMEGALY [None]
  - VISUAL DISTURBANCE [None]
  - WEIGHT DECREASED [None]
